FAERS Safety Report 5457803-4 (Version None)
Quarter: 2007Q3

REPORT INFORMATION
  Report Type: 
  Country: None (occurrence: None)
  Receive Date: 20070917
  Receipt Date: 20070903
  Transmission Date: 20080115
  Serious: Yes (Hospitalization, Other)
  Sender: FDA-Public Use
  Company Number: L07-USA-03744-01

PATIENT
  Age: 54 Year
  Sex: Male

DRUGS (3)
  1. RIMANTADINE [Suspect]
     Indication: INFLUENZA
  2. ZANAMIVIR [Suspect]
     Indication: INFLUENZA
  3. AZITHROMYCIN [Suspect]
     Indication: INFLUENZA

REACTIONS (1)
  - LINEAR IGA DISEASE [None]
